FAERS Safety Report 9505193 (Version 1)
Quarter: 2013Q1

REPORT INFORMATION
  Report Type: Spontaneous
  Country: US (occurrence: None)
  Receive Date: 20130225
  Receipt Date: 20130225
  Transmission Date: 20140127
  Serious: Yes (Other)
  Sender: FDA-Public Use
  Company Number: 363642

PATIENT
  Age: 58 Year
  Sex: Female
  Weight: 98 kg

DRUGS (18)
  1. VICTOZA (LIRAGLUTIDE) SOLUTION FOR INJECTION, 6MG/ML [Suspect]
     Indication: TYPE 2 DIABETES MELLITUS
     Route: 058
     Dates: start: 20120625, end: 20120701
  2. ABILIFY (ARIPIPRAZOLE) [Concomitant]
  3. ASPIRIN ENTERIC COATED K.P. [Concomitant]
  4. CALCIUM+VIT D (CALCIUM CARBONATE, VITAMIN D NOS) [Concomitant]
  5. CYCLOBENZAPRINE HCL (CYCLOBENZAPRINE HYDROCHLORIDE) [Concomitant]
  6. DILTIAZEM HCL EXTE-REL (DILTIAZEM HYDROCHLORIDE) [Concomitant]
  7. ERGOCALCIFEROL (ERGOCALCIFEROL) [Concomitant]
  8. FUROSEMIDE (FUROSEMIDE) [Concomitant]
  9. GLIPIZIDE (GLIPIZIDE) [Concomitant]
  10. JANUVIA (SITAGLIPTIN PHOSPHATE) [Concomitant]
  11. LEVOTHYROXINE SODIUM (LEVOTHYROXINE SODIUM) [Concomitant]
  12. METOPROLOL TARTRATE (METOPROLOL TARTRATE) (TABLETS) (METOPROLOL TARTRATE) [Concomitant]
  13. PRAVASTATIN SODIUM (PRAVASTATIN SODIUM) [Concomitant]
  14. PRIMIDONE (PRIMIDONE) [Concomitant]
  15. PRIMIDONE (PRIMIDONE) [Concomitant]
  16. PROMETHAZINE HCL )PROMETHAZINE HYDROCHLORIDE) [Concomitant]
  17. SERTRALINE HCL (SERTRALINE HYDROCHLORIDE) [Concomitant]
  18. TRIAMTERENE AND HYDROCHLOROTHIAZID (HYDROCHLOROTHIAZIDE, TRIAMTERENE) [Concomitant]

REACTIONS (1)
  - Pancreatitis [None]
